FAERS Safety Report 7471148-2 (Version None)
Quarter: 2011Q2

REPORT INFORMATION
  Report Type: 
  Country: None (occurrence: None)
  Receive Date: 20110510
  Receipt Date: 20091012
  Transmission Date: 20111010
  Serious: Yes (Hospitalization)
  Sender: FDA-Public Use
  Company Number: DE-GENENTECH-318112

PATIENT
  Sex: Female

DRUGS (1)
  1. LUCENTIS [Suspect]
     Indication: AGE-RELATED MACULAR DEGENERATION
     Dosage: UNK
     Route: 031
     Dates: start: 20090902

REACTIONS (8)
  - VISUAL ACUITY REDUCED [None]
  - SHOCK [None]
  - THERMAL BURN [None]
  - FALL [None]
  - NASOPHARYNGITIS [None]
  - HYPOGLYCAEMIA [None]
  - MOVEMENT DISORDER [None]
  - EYE PAIN [None]
